FAERS Safety Report 23027645 (Version 1)
Quarter: 2023Q4

REPORT INFORMATION
  Report Type: Spontaneous
  Country: US (occurrence: None)
  Receive Date: 20231003
  Receipt Date: 20231003
  Transmission Date: 20240109
  Serious: Yes (Other)
  Sender: FDA-Public Use
  Company Number: None

PATIENT
  Age: 78 Year
  Sex: Female

DRUGS (2)
  1. EVENITY [Suspect]
     Active Substance: ROMOSOZUMAB-AQQG
     Indication: Osteoporosis
     Dosage: FREQUENCY : MONTHLY;?
     Route: 058
     Dates: start: 20230913, end: 20230914
  2. PROLIA [Suspect]
     Active Substance: DENOSUMAB

REACTIONS (6)
  - Arthralgia [None]
  - Myalgia [None]
  - Muscular weakness [None]
  - Joint stiffness [None]
  - Asthenia [None]
  - Rash [None]

NARRATIVE: CASE EVENT DATE: 20230914
